FAERS Safety Report 14683012 (Version 2)
Quarter: 2018Q2

REPORT INFORMATION
  Report Type: Report from Study
  Country: JP (occurrence: JP)
  Receive Date: 20180327
  Receipt Date: 20180605
  Transmission Date: 20180711
  Serious: Yes (Death, Hospitalization, Other)
  Sender: FDA-Public Use
  Company Number: JP-009507513-1803JPN002163J

PATIENT
  Age: 80 Year
  Sex: Male
  Weight: 62 kg

DRUGS (5)
  1. MUCOSOLVAN [Concomitant]
     Active Substance: AMBROXOL HYDROCHLORIDE
     Indication: PRODUCTIVE COUGH
     Dosage: 15 MG, TID
     Route: 048
     Dates: start: 20171107, end: 20180313
  2. PEMBROLIZUMAB. [Suspect]
     Active Substance: PEMBROLIZUMAB
     Indication: TRANSITIONAL CELL CARCINOMA
     Dosage: 200 MG, Q3W
     Route: 041
     Dates: start: 20180228, end: 20180228
  3. NEXIUM [Concomitant]
     Active Substance: ESOMEPRAZOLE MAGNESIUM
     Indication: PROPHYLAXIS
     Dosage: 20 MG, QD
     Route: 048
     Dates: start: 20170907, end: 20180313
  4. ASTOMIN [Concomitant]
     Active Substance: DIMEMORFAN
     Indication: ANTITUSSIVE THERAPY
     Dosage: 10 MG, TID
     Route: 048
     Dates: start: 20180123, end: 20180313
  5. LOXOPROFEN [Concomitant]
     Active Substance: LOXOPROFEN
     Indication: PAIN
     Dosage: 60 MG, TID
     Route: 048
     Dates: start: 20170907, end: 20180313

REACTIONS (2)
  - Interstitial lung disease [Fatal]
  - Malignant neoplasm progression [Fatal]

NARRATIVE: CASE EVENT DATE: 20180312
